FAERS Safety Report 4942831-5 (Version None)
Quarter: 2006Q1

REPORT INFORMATION
  Report Type: 
  Country: None (occurrence: None)
  Receive Date: 20060309
  Receipt Date: 20060224
  Transmission Date: 20060701
  Serious: Yes (Hospitalization)
  Sender: FDA-Public Use
  Company Number: CERZ-10903

PATIENT
  Age: 11 Month
  Sex: Female
  Weight: 5 kg

DRUGS (2)
  1. CEREZYME [Suspect]
     Indication: GAUCHER'S DISEASE
     Dosage: 600 UNITS Q2WKS IV
     Route: 042
  2. CEREZYME [Suspect]
     Indication: GAUCHER'S DISEASE
     Dosage: 400 UNITS Q2WKS IV
     Route: 042
     Dates: start: 20040827

REACTIONS (4)
  - DISEASE RECURRENCE [None]
  - NASOPHARYNGITIS [None]
  - RESPIRATORY DISORDER [None]
  - VOMITING [None]
